FAERS Safety Report 7633097-6 (Version None)
Quarter: 2011Q3

REPORT INFORMATION
  Report Type: 
  Country: None (occurrence: None)
  Receive Date: 20110725
  Receipt Date: 20110718
  Transmission Date: 20111222
  Serious: Yes (Death)
  Sender: FDA-Public Use
  Company Number: JP-ROCHE-640024

PATIENT
  Age: 59 Year

DRUGS (2)
  1. IRINOTECAN HCL [Suspect]
     Indication: BREAST CANCER METASTATIC
     Route: 041
  2. HERCEPTIN [Suspect]
     Indication: BREAST CANCER METASTATIC
     Route: 041

REACTIONS (4)
  - SEPSIS [None]
  - DECREASED APPETITE [None]
  - NEUTROPHIL COUNT DECREASED [None]
  - NAUSEA [None]
